FAERS Safety Report 24916266 (Version 1)
Quarter: 2025Q1

REPORT INFORMATION
  Report Type: Spontaneous
  Country: IE (occurrence: IE)
  Receive Date: 20250203
  Receipt Date: 20250203
  Transmission Date: 20250408
  Serious: Yes (Death, Other)
  Sender: MYLAN
  Company Number: IE-MYLANLABS-2025M1009545

PATIENT
  Sex: Male

DRUGS (1)
  1. CLOZARIL [Suspect]
     Active Substance: CLOZAPINE
     Indication: Schizophrenia
     Route: 048
     Dates: start: 20080312

REACTIONS (2)
  - Cardiac arrest [Fatal]
  - Loss of consciousness [Unknown]
